FAERS Safety Report 8159105 (Version 2)
Quarter: 2015Q1

REPORT INFORMATION
  Report Type: Spontaneous
  Country: US (occurrence: US)
  Receive Date: 20110927
  Receipt Date: 20150330
  Transmission Date: 20150721
  Serious: Yes (Life-Threatening, Hospitalization, Congenital Anomaly, Other)
  Sender: FDA-Public Use
  Company Number: US-ELI_LILLY_AND_COMPANY-US201109004319

PATIENT
  Sex: Female

DRUGS (1)
  1. PROZAC [Suspect]
     Active Substance: FLUOXETINE HYDROCHLORIDE
     Indication: PRODUCT USED FOR UNKNOWN INDICATION
     Route: 064

REACTIONS (6)
  - Pulmonary valve stenosis [Not Recovered/Not Resolved]
  - Exposure during pregnancy [Recovered/Resolved]
  - Transposition of the great vessels [Recovered/Resolved]
  - Atrial septal defect [Recovered/Resolved]
  - Apnoea [Recovered/Resolved]
  - Patent ductus arteriosus [Recovered/Resolved]
